FAERS Safety Report 7633273-2 (Version None)
Quarter: 2011Q3

REPORT INFORMATION
  Report Type: 
  Country: None (occurrence: None)
  Receive Date: 20110725
  Receipt Date: 20110715
  Transmission Date: 20111222
  Serious: Yes (Death)
  Sender: FDA-Public Use
  Company Number: AT-PURDUE-DEU-2011-0007374

PATIENT
  Age: 15 Year
  Sex: Male

DRUGS (1)
  1. MORPHINE [Suspect]
     Indication: DRUG ABUSE

REACTIONS (3)
  - OVERDOSE [None]
  - DRUG ABUSE [None]
  - CIRCULATORY COLLAPSE [None]
